FAERS Safety Report 25904748 (Version 2)
Quarter: 2025Q4

REPORT INFORMATION
  Report Type: Spontaneous
  Country: US (occurrence: US)
  Receive Date: 20251010
  Receipt Date: 20251020
  Transmission Date: 20260118
  Serious: No
  Sender: ROCHE
  Company Number: US-ROCHE-10000402629

PATIENT
  Sex: Female

DRUGS (2)
  1. RITUXAN [Suspect]
     Active Substance: RITUXIMAB
     Indication: Secondary progressive multiple sclerosis
     Route: 042
     Dates: start: 2019
  2. TYSABRI [Concomitant]
     Active Substance: NATALIZUMAB
     Dates: start: 202210

REACTIONS (5)
  - Gene mutation [Unknown]
  - Crohn^s disease [Unknown]
  - Psoriasis [Unknown]
  - Ear disorder [Unknown]
  - Off label use [Unknown]
